FAERS Safety Report 16517689 (Version 2)
Quarter: 2019Q3

REPORT INFORMATION
  Report Type: Spontaneous
  Country: TW (occurrence: TW)
  Receive Date: 20190702
  Receipt Date: 20190715
  Transmission Date: 20191004
  Serious: Yes (Other)
  Sender: FDA-Public Use
  Company Number: TW-AMGEN-TWNSP2019074481

PATIENT
  Age: 51 Year
  Sex: Female

DRUGS (4)
  1. BLINCYTO [Suspect]
     Active Substance: BLINATUMOMAB
     Dosage: UNK
     Route: 065
     Dates: start: 20190515
  2. BLINCYTO [Suspect]
     Active Substance: BLINATUMOMAB
     Indication: ACUTE LYMPHOCYTIC LEUKAEMIA
     Dosage: 9 MICROGRAM
     Route: 065
     Dates: start: 20190507
  3. BLINCYTO [Suspect]
     Active Substance: BLINATUMOMAB
     Dosage: UNK
     Route: 065
     Dates: start: 20190509
  4. BLINCYTO [Suspect]
     Active Substance: BLINATUMOMAB
     Dosage: UNK
     Route: 065
     Dates: start: 20190530

REACTIONS (12)
  - CSF lymphocyte count increased [Unknown]
  - Pancytopenia [Recovering/Resolving]
  - Polyneuropathy [Unknown]
  - Liver function test abnormal [Recovering/Resolving]
  - Neurotoxicity [Unknown]
  - Dyspnoea [Unknown]
  - Petechiae [Unknown]
  - Autonomic neuropathy [Unknown]
  - Tremor [Unknown]
  - Heart rate increased [Unknown]
  - Hypotension [Unknown]
  - CSF red blood cell count positive [Unknown]

NARRATIVE: CASE EVENT DATE: 2019
